FAERS Safety Report 16393850 (Version 1)
Quarter: 2019Q3

REPORT INFORMATION
  Report Type: Spontaneous
  Country: US (occurrence: US)
  Receive Date: 20190603
  Receipt Date: 20190603
  Transmission Date: 20191004
  Serious: No
  Sender: FDA-Public Use
  Company Number: None

PATIENT
  Age: 56 Year
  Sex: Male
  Weight: 78.75 kg

DRUGS (1)
  1. REMICADE [Suspect]
     Active Substance: INFLIXIMAB
     Indication: COLITIS ULCERATIVE
     Dosage: ?          QUANTITY:100 MG;OTHER FREQUENCY:EVERY 4 WEEKS;OTHER ROUTE:INFUSION?
     Dates: start: 20180207

REACTIONS (2)
  - Rash [None]
  - Swelling of eyelid [None]

NARRATIVE: CASE EVENT DATE: 20190303
